FAERS Safety Report 10642964 (Version 1)
Quarter: 2014Q4

REPORT INFORMATION
  Report Type: Spontaneous
  Country: US (occurrence: None)
  Receive Date: 20141209
  Receipt Date: 20141209
  Transmission Date: 20150529
  Serious: Yes (Life-Threatening)
  Sender: FDA-Public Use
  Company Number: None

PATIENT
  Age: 66 Year
  Sex: Male
  Weight: 88.45 kg

DRUGS (2)
  1. XARELTO [Suspect]
     Active Substance: RIVAROXABAN
     Indication: CEREBROVASCULAR ACCIDENT PROPHYLAXIS
     Dosage: 1 PILL EVERY 24 HRS WITH FOOD  TAKEN BY MOUTH
     Dates: start: 20140303, end: 20140602
  2. XARELTO [Suspect]
     Active Substance: RIVAROXABAN
     Indication: TRANSIENT ISCHAEMIC ATTACK
     Dosage: 1 PILL EVERY 24 HRS WITH FOOD  TAKEN BY MOUTH
     Dates: start: 20140303, end: 20140602

REACTIONS (2)
  - Haematoma [None]
  - Transient ischaemic attack [None]

NARRATIVE: CASE EVENT DATE: 20140527
